FAERS Safety Report 18362588 (Version 1)
Quarter: 2020Q4

REPORT INFORMATION
  Report Type: Spontaneous
  Country: AU (occurrence: AU)
  Receive Date: 20201009
  Receipt Date: 20201009
  Transmission Date: 20210114
  Serious: Yes (Death, Hospitalization)
  Sender: FDA-Public Use
  Company Number: AU-MDD US OPERATIONS-STA_00018057

PATIENT
  Age: 73 Year
  Sex: Female

DRUGS (2)
  1. APOMORPHINE HYDROCHLORIDE [Suspect]
     Active Substance: APOMORPHINE HYDROCHLORIDE
     Indication: PARKINSON^S DISEASE
     Dosage: NOT PROVIDED
     Route: 058
     Dates: start: 201607
  2. SEROQUEL [Suspect]
     Active Substance: QUETIAPINE FUMARATE
     Indication: PRODUCT USED FOR UNKNOWN INDICATION
     Dosage: NOT PROVIDED

REACTIONS (6)
  - Confusional state [Unknown]
  - Death [Fatal]
  - Blood pressure decreased [Recovered/Resolved]
  - Dysarthria [Unknown]
  - Feeling abnormal [Unknown]
  - Sedation [Unknown]

NARRATIVE: CASE EVENT DATE: 20160810
